FAERS Safety Report 10085081 (Version 4)
Quarter: 2014Q3

REPORT INFORMATION
  Report Type: Spontaneous
  Country: US (occurrence: US)
  Receive Date: 20140417
  Receipt Date: 20140730
  Transmission Date: 20150326
  Serious: Yes (Death, Hospitalization, Other)
  Sender: FDA-Public Use
  Company Number: US-B.I. PHARMACEUTICALS,INC./RIDGEFIELD-2014-BI-17356BP

PATIENT
  Age: 69 Year
  Sex: Male

DRUGS (6)
  1. UNSPECIFIED DRUGS FOR HEART PROBLEMS [Concomitant]
     Indication: CARDIAC DISORDER
     Route: 065
  2. UNSPECIFIED DRUGS FOR KIDNEY PROBLEMS [Concomitant]
     Indication: RENAL DISORDER
     Route: 065
  3. UNSPECIFIED DRUGS FOR HIGH BLOOD PRESSURE [Concomitant]
     Indication: HYPERTENSION
     Route: 065
  4. UNSPECIFIED DRUGS FOR HIGH CHOLESTEROL [Concomitant]
     Indication: BLOOD CHOLESTEROL INCREASED
     Route: 065
  5. SPIRIVA [Suspect]
     Active Substance: TIOTROPIUM BROMIDE MONOHYDRATE
     Indication: CHRONIC OBSTRUCTIVE PULMONARY DISEASE
     Dosage: 18 MCG
     Route: 055
  6. ANTIBIOTICS [Concomitant]
     Active Substance: UNSPECIFIED INGREDIENT
     Route: 065

REACTIONS (3)
  - Cardiac disorder [Fatal]
  - Haemoptysis [Fatal]
  - Lung cancer metastatic [Fatal]

NARRATIVE: CASE EVENT DATE: 201401
